FAERS Safety Report 4939335-2 (Version None)
Quarter: 2006Q1

REPORT INFORMATION
  Report Type: 
  Country: None (occurrence: None)
  Receive Date: 20060306
  Receipt Date: 20060216
  Transmission Date: 20060701
  Serious: Yes (Other)
  Sender: FDA-Public Use
  Company Number: 222383

PATIENT
  Age: 68 Year
  Sex: Female

DRUGS (13)
  1. MABTHERA (RITUXIMAB) CONC FOR SOLUTION FOR INFUSION [Suspect]
     Indication: RHEUMATOID ARTHRITIS
     Dosage: 1000 MG, INTRAVENOUS
     Route: 042
     Dates: start: 20051220, end: 20051220
  2. HYDREX SEMI (HYDROCHLOROTHIAZIDE) [Concomitant]
  3. COZAAR [Concomitant]
  4. TENOX (TEMAZEPAM) [Concomitant]
  5. PREDNISOLONE [Concomitant]
  6. NEXIUM [Concomitant]
  7. PANOCOD (ACETAMINOPHEN, CODEINE PHOSPHATE) [Concomitant]
  8. FOLIC ACID [Concomitant]
  9. FOSAMAX [Concomitant]
  10. CALCIUM (CALCIUM NOS) [Concomitant]
  11. MULTIVITAMIN (MULTIVITAMINS NOS) [Concomitant]
  12. METHOTREXATE [Concomitant]
  13. KEFEXIN (CEPHALEXIN) [Concomitant]

REACTIONS (2)
  - DERMATITIS PSORIASIFORM [None]
  - OEDEMA [None]
